FAERS Safety Report 12862395 (Version 1)
Quarter: 2016Q4

REPORT INFORMATION
  Report Type: Spontaneous
  Country: CN (occurrence: CN)
  Receive Date: 20161019
  Receipt Date: 20161019
  Transmission Date: 20170207
  Serious: Yes (Other)
  Sender: FDA-Public Use
  Company Number: CN-009507513-1610CHN006015

PATIENT
  Age: 78 Year
  Sex: Female

DRUGS (2)
  1. BENSERAZIDE HYDROCHLORIDE (+) LEVODOPA [Suspect]
     Active Substance: BENSERAZIDE\LEVODOPA
     Indication: PARKINSON^S DISEASE
     Dosage: 0.125 G, BID
     Route: 048
     Dates: start: 20160711, end: 20160725
  2. IMIPENEM AND CILASTATIN [Suspect]
     Active Substance: CILASTATIN SODIUM\IMIPENEM
     Indication: LUNG INFECTION
     Dosage: 1 G, TID
     Route: 041
     Dates: start: 20160711, end: 20160720

REACTIONS (1)
  - Epilepsy [Recovered/Resolved]

NARRATIVE: CASE EVENT DATE: 20160718
